FAERS Safety Report 7930544-7 (Version None)
Quarter: 2011Q4

REPORT INFORMATION
  Report Type: 
  Country: None (occurrence: None)
  Receive Date: 20111117
  Receipt Date: 20111117
  Transmission Date: 20120403
  Serious: Yes (Hospitalization)
  Sender: FDA-Public Use
  Company Number: None

PATIENT
  Sex: Male
  Weight: 82.1011 kg

DRUGS (7)
  1. CENTRUM ELIGARD [Concomitant]
  2. ZOMETA [Concomitant]
  3. REVLIMID [Suspect]
     Indication: PROSTATE CANCER
     Dosage: 20 MG QD X 21 DAYS PO
     Route: 048
     Dates: start: 20110519, end: 20111101
  4. HYDROMORPHONE HCL [Concomitant]
  5. LORAZEPAM [Concomitant]
  6. ASPIRIN [Concomitant]
  7. CALCIUM [Concomitant]

REACTIONS (4)
  - DYSPNOEA [None]
  - DISEASE PROGRESSION [None]
  - ABDOMINAL PAIN [None]
  - DIVERTICULITIS [None]
